FAERS Safety Report 7678844-2 (Version None)
Quarter: 2011Q3

REPORT INFORMATION
  Report Type: 
  Country: None (occurrence: None)
  Receive Date: 20110812
  Receipt Date: 20110804
  Transmission Date: 20111222
  Serious: Yes (Other)
  Sender: FDA-Public Use
  Company Number: PHHY2011FR65045

PATIENT
  Sex: Female
  Weight: 62 kg

DRUGS (1)
  1. ZOMETA [Suspect]
     Indication: METASTASES TO BONE
     Dosage: 4 MG EVERY 3 WEEKS
     Route: 042
     Dates: start: 20090703, end: 20110304

REACTIONS (2)
  - OSTEONECROSIS OF JAW [None]
  - DRUG INEFFECTIVE [None]
